FAERS Safety Report 8394568-0 (Version None)
Quarter: 2012Q2

REPORT INFORMATION
  Report Type: 
  Country: None (occurrence: None)
  Receive Date: 20120530
  Receipt Date: 20120524
  Transmission Date: 20120825
  Serious: Yes (Death, Hospitalization)
  Sender: FDA-Public Use
  Company Number: CA-SANOFI-AVENTIS-2012SA006234

PATIENT
  Age: 65 Year
  Sex: Female
  Weight: 73.02 kg

DRUGS (17)
  1. TRASTUZUMAB [Suspect]
     Route: 042
     Dates: start: 20080101
  2. HYDROMORPHONE HCL [Concomitant]
     Dates: start: 20120201
  3. ZOFRAN [Concomitant]
  4. TRASTUZUMAB [Suspect]
     Route: 042
     Dates: start: 20120106
  5. DIAMICRON [Concomitant]
     Dates: start: 20120201
  6. DOCETAXEL [Suspect]
     Route: 042
     Dates: start: 20110701, end: 20120106
  7. TRASTUZUMAB [Suspect]
     Route: 042
     Dates: start: 20110916
  8. METFORMIN HCL [Concomitant]
     Dates: start: 20120201
  9. PROCHLORPERAZINE [Concomitant]
     Dates: start: 20120201
  10. NYSTATIN [Concomitant]
     Route: 048
     Dates: start: 20110918
  11. SYNTHROID [Concomitant]
     Dates: start: 20120201
  12. MOTILIUM [Concomitant]
  13. LYRICA [Concomitant]
     Dates: start: 20120201
  14. DEXAMETHASONE [Concomitant]
  15. TRASTUZUMAB [Suspect]
     Route: 042
     Dates: start: 20111007
  16. PREVACID [Concomitant]
     Dates: start: 20120201
  17. ROSUVASTATIN [Concomitant]
     Dates: start: 20120201

REACTIONS (8)
  - STAPHYLOCOCCAL BACTERAEMIA [None]
  - ASTHENIA [None]
  - DEATH [None]
  - EPISTAXIS [None]
  - INFECTION [None]
  - OEDEMA [None]
  - DEHYDRATION [None]
  - FEBRILE NEUTROPENIA [None]
